FAERS Safety Report 23914428 (Version 1)
Quarter: 2024Q2

REPORT INFORMATION
  Report Type: Spontaneous
  Country: GB (occurrence: GB)
  Receive Date: 20240529
  Receipt Date: 20240529
  Transmission Date: 20240716
  Serious: Yes (Other)
  Sender: FDA-Public Use
  Company Number: GB-SUN PHARMACEUTICAL INDUSTRIES LTD-2024R1-448004

PATIENT
  Age: 50 Year
  Sex: Male
  Weight: 109.8 kg

DRUGS (1)
  1. INDOMETHACIN [Suspect]
     Active Substance: INDOMETHACIN
     Indication: Headache
     Dosage: 200 MILLIGRAM
     Route: 030

REACTIONS (1)
  - Psychotic disorder [Unknown]
